FAERS Safety Report 9319466 (Version 2)
Quarter: 2013Q3

REPORT INFORMATION
  Report Type: Spontaneous
  Country: US (occurrence: US)
  Receive Date: 20130530
  Receipt Date: 20130813
  Transmission Date: 20140515
  Serious: Yes (Hospitalization)
  Sender: FDA-Public Use
  Company Number: US-GLAXOSMITHKLINE-A0987283A

PATIENT
  Age: 76 Year
  Sex: Male

DRUGS (1)
  1. FLOLAN [Suspect]
     Indication: PULMONARY ARTERIAL HYPERTENSION
     Dosage: 14NGKM CONTINUOUS
     Route: 042
     Dates: start: 20100223

REACTIONS (2)
  - Dizziness [Recovered/Resolved]
  - Hospitalisation [Recovered/Resolved]
